FAERS Safety Report 24311070 (Version 1)
Quarter: 2024Q3

REPORT INFORMATION
  Report Type: Spontaneous
  Country: CZ (occurrence: CZ)
  Receive Date: 20240912
  Receipt Date: 20240912
  Transmission Date: 20241016
  Serious: Yes (Other)
  Sender: ROCHE
  Company Number: CZ-ROCHE-2560093

PATIENT
  Age: 56 Year
  Sex: Male

DRUGS (5)
  1. BEVACIZUMAB [Suspect]
     Active Substance: BEVACIZUMAB
     Indication: Intestinal adenocarcinoma
     Route: 065
     Dates: start: 201710, end: 201810
  2. LEUCOVORIN [Suspect]
     Active Substance: LEUCOVORIN\LEUCOVORIN CALCIUM
     Indication: Intestinal adenocarcinoma
     Route: 065
     Dates: start: 20171025, end: 201810
  3. FLUOROURACIL [Suspect]
     Active Substance: FLUOROURACIL
     Indication: Intestinal adenocarcinoma
     Route: 065
     Dates: start: 201710, end: 201810
  4. IRINOTECAN [Suspect]
     Active Substance: IRINOTECAN
     Indication: Intestinal adenocarcinoma
     Route: 065
     Dates: start: 201710, end: 201810
  5. TIPIRACIL HYDROCHLORIDE\TRIFLURIDINE [Concomitant]
     Active Substance: TIPIRACIL HYDROCHLORIDE\TRIFLURIDINE
     Indication: Intestinal adenocarcinoma
     Dosage: THIRD LINE TREATMENT
     Route: 065
     Dates: start: 201710, end: 201810

REACTIONS (4)
  - Neutropenia [Recovered/Resolved]
  - Palmar-plantar erythrodysaesthesia syndrome [Recovered/Resolved]
  - Metastases to lung [Unknown]
  - Disease progression [Unknown]

NARRATIVE: CASE EVENT DATE: 20181009
